FAERS Safety Report 17984374 (Version 1)
Quarter: 2020Q3

REPORT INFORMATION
  Report Type: Spontaneous
  Country: US (occurrence: US)
  Receive Date: 20200706
  Receipt Date: 20200706
  Transmission Date: 20201103
  Serious: No
  Sender: FDA-Public Use
  Company Number: None

PATIENT
  Age: 41 Year
  Sex: Female
  Weight: 88.47 kg

DRUGS (3)
  1. BUPROPION ER 150MG [Concomitant]
     Active Substance: BUPROPION
  2. EVEROLIMUS. [Suspect]
     Active Substance: EVEROLIMUS
     Indication: BREAST CANCER FEMALE
     Route: 048
     Dates: start: 20200610
  3. DECARA 50000 [Concomitant]

REACTIONS (2)
  - Rash [None]
  - Therapy change [None]

NARRATIVE: CASE EVENT DATE: 20200706
